FAERS Safety Report 13710461 (Version 1)
Quarter: 2017Q3

REPORT INFORMATION
  Report Type: Spontaneous
  Country: US (occurrence: US)
  Receive Date: 20170703
  Receipt Date: 20170703
  Transmission Date: 20171127
  Serious: Yes (Other)
  Sender: FDA-Public Use
  Company Number: US-AMGEN-USASP2017097605

PATIENT
  Age: 72 Year
  Sex: Female

DRUGS (15)
  1. PROLIA [Suspect]
     Active Substance: DENOSUMAB
     Indication: OSTEOPOROSIS POSTMENOPAUSAL
     Dosage: 60 MG, Q6MO
     Route: 065
     Dates: start: 201611
  2. LIPITOR [Concomitant]
     Active Substance: ATORVASTATIN CALCIUM
  3. CALCITROL [Concomitant]
     Active Substance: CALCITRIOL
  4. FENTANYL. [Concomitant]
     Active Substance: FENTANYL
     Dosage: 50 MC/HR
  5. VITAMIN B12 [Concomitant]
     Active Substance: CYANOCOBALAMIN
     Dosage: 2500 MUG, QD
  6. NOVOLOG [Concomitant]
     Active Substance: INSULIN ASPART
  7. CLONIDIN [Concomitant]
     Active Substance: CLONIDINE
  8. ASPIRIN 81 [Concomitant]
     Active Substance: ASPIRIN
  9. JANUVIA [Concomitant]
     Active Substance: SITAGLIPTIN PHOSPHATE
  10. ALLOPURINOL. [Concomitant]
     Active Substance: ALLOPURINOL
  11. HUMALOG [Concomitant]
     Active Substance: INSULIN LISPRO
  12. AMLODIPINE [Concomitant]
     Active Substance: AMLODIPINE BESYLATE
  13. FUROSEMIDE. [Concomitant]
     Active Substance: FUROSEMIDE
     Dosage: UNK UNK, AS NECESSARY
  14. VALSARTAN. [Concomitant]
     Active Substance: VALSARTAN
  15. LINZESS [Concomitant]
     Active Substance: LINACLOTIDE

REACTIONS (4)
  - Creatinine renal clearance abnormal [Not Recovered/Not Resolved]
  - Renal impairment [Not Recovered/Not Resolved]
  - Hypocalcaemia [Not Recovered/Not Resolved]
  - Blood phosphorus increased [Not Recovered/Not Resolved]

NARRATIVE: CASE EVENT DATE: 2017
